FAERS Safety Report 19681919 (Version 3)
Quarter: 2021Q4

REPORT INFORMATION
  Report Type: Report from Study
  Country: US (occurrence: US)
  Receive Date: 20210810
  Receipt Date: 20211020
  Transmission Date: 20220303
  Serious: Yes (Hospitalization, Other)
  Sender: FDA-Public Use
  Company Number: US-TAKEDA-2021TUS048371

PATIENT
  Age: 53 Year
  Sex: Male

DRUGS (4)
  1. TEDUGLUTIDE [Suspect]
     Active Substance: TEDUGLUTIDE
     Indication: Short-bowel syndrome
     Dosage: 3.57 MILLIGRAM, QD
     Route: 058
     Dates: start: 20210629, end: 202109
  2. TEDUGLUTIDE [Suspect]
     Active Substance: TEDUGLUTIDE
     Indication: Short-bowel syndrome
     Dosage: 3.57 MILLIGRAM, QD
     Route: 058
     Dates: start: 20210629, end: 202109
  3. TEDUGLUTIDE [Suspect]
     Active Substance: TEDUGLUTIDE
     Indication: Short-bowel syndrome
     Dosage: 3.57 MILLIGRAM, QD
     Route: 058
     Dates: start: 20210629, end: 202109
  4. TEDUGLUTIDE [Suspect]
     Active Substance: TEDUGLUTIDE
     Indication: Short-bowel syndrome
     Dosage: 3.57 MILLIGRAM, QD
     Route: 058
     Dates: start: 20210629, end: 202109

REACTIONS (6)
  - Kidney infection [Unknown]
  - Hepatorenal syndrome [Unknown]
  - Peripheral swelling [Unknown]
  - Anaemia [Unknown]
  - Suspected COVID-19 [Unknown]
  - Hospitalisation [Unknown]

NARRATIVE: CASE EVENT DATE: 20210705
